FAERS Safety Report 23235263 (Version 1)
Quarter: 2023Q4

REPORT INFORMATION
  Report Type: Spontaneous
  Country: US (occurrence: None)
  Receive Date: 20231127
  Receipt Date: 20231127
  Transmission Date: 20240110
  Serious: Yes (Hospitalization)
  Sender: FDA-Public Use
  Company Number: None

PATIENT
  Age: 30 Year
  Sex: Female
  Weight: 72 kg

DRUGS (1)
  1. SOLU-CORTEF [Suspect]
     Active Substance: HYDROCORTISONE SODIUM SUCCINATE
     Indication: Adrenocortical insufficiency acute

REACTIONS (7)
  - Product communication issue [None]
  - Wrong technique in product usage process [None]
  - Device difficult to use [None]
  - Injection site discharge [None]
  - Incorrect dose administered [None]
  - Hypotension [None]
  - Product complaint [None]

NARRATIVE: CASE EVENT DATE: 20231127
